FAERS Safety Report 24812543 (Version 2)
Quarter: 2025Q1

REPORT INFORMATION
  Report Type: Report from Study
  Country: US (occurrence: US)
  Receive Date: 20250107
  Receipt Date: 20250120
  Transmission Date: 20250409
  Serious: No
  Sender: GLAXOSMITHKLINE
  Company Number: US-GSK-US2024165449

PATIENT
  Age: 65 Year
  Sex: Female

DRUGS (3)
  1. MEPOLIZUMAB [Suspect]
     Active Substance: MEPOLIZUMAB
     Indication: Nasal polyps
     Dosage: 100 MG/ML, Q4W,CYCLIC
     Route: 058
     Dates: start: 20241119
  2. MEPOLIZUMAB [Suspect]
     Active Substance: MEPOLIZUMAB
     Indication: Asthma
     Dates: start: 20241226
  3. MEPOLIZUMAB [Suspect]
     Active Substance: MEPOLIZUMAB
     Indication: Sinusitis

REACTIONS (7)
  - Abdominal pain upper [Not Recovered/Not Resolved]
  - Malaise [Unknown]
  - Diarrhoea [Recovering/Resolving]
  - Back pain [Unknown]
  - Cough [Recovering/Resolving]
  - Therapeutic product effective for unapproved indication [Unknown]
  - Product use in unapproved indication [Unknown]

NARRATIVE: CASE EVENT DATE: 20241119
